FAERS Safety Report 17166007 (Version 3)
Quarter: 2020Q2

REPORT INFORMATION
  Report Type: Spontaneous
  Country: FR (occurrence: FR)
  Receive Date: 20191217
  Receipt Date: 20200511
  Transmission Date: 20200713
  Serious: Yes (Other)
  Sender: FDA-Public Use
  Company Number: FR-ELI_LILLY_AND_COMPANY-FR201912003824

PATIENT
  Age: 46 Year
  Sex: Female

DRUGS (8)
  1. NOCTAMIDE [Suspect]
     Active Substance: LORMETAZEPAM
     Dosage: ONE TABLET DAILY AT BEDTIME
     Route: 048
     Dates: start: 202001
  2. SERESTA [Suspect]
     Active Substance: OXAZEPAM
     Dosage: 1 TABLET DAILY
     Route: 048
     Dates: start: 202001
  3. PROZAC [Suspect]
     Active Substance: FLUOXETINE HYDROCHLORIDE
     Indication: INSOMNIA
     Dosage: 1 DOSAGE FORM, DAILY
     Route: 048
     Dates: start: 201605, end: 202001
  4. NOCTAMIDE [Suspect]
     Active Substance: LORMETAZEPAM
     Indication: INSOMNIA
     Dosage: 2 TABLETS EVERY EVENING
     Route: 048
  5. NOCTAMIDE [Suspect]
     Active Substance: LORMETAZEPAM
     Dosage: 2 TABLETS EVERY EVENING
     Route: 048
     Dates: start: 201605, end: 202001
  6. THERALENE [Suspect]
     Active Substance: TRIMEPRAZINE
     Indication: INSOMNIA
     Dosage: 20 TABLETS EVERY EVENING
     Route: 048
     Dates: start: 201605, end: 202001
  7. SERESTA [Suspect]
     Active Substance: OXAZEPAM
     Indication: INSOMNIA
     Dosage: 2 TABLETS DAILY IN THE EVENING
     Route: 048
  8. SERESTA [Suspect]
     Active Substance: OXAZEPAM
     Dosage: 6 TABLETS DAILY
     Route: 048
     Dates: start: 201605, end: 202001

REACTIONS (3)
  - Drug dependence [Recovered/Resolved]
  - Weight increased [Recovering/Resolving]
  - Off label use [Unknown]

NARRATIVE: CASE EVENT DATE: 201605
